FAERS Safety Report 16747271 (Version 1)
Quarter: 2019Q3

REPORT INFORMATION
  Report Type: Spontaneous
  Country: US (occurrence: US)
  Receive Date: 20190827
  Receipt Date: 20190827
  Transmission Date: 20191005
  Serious: No
  Sender: FDA-Public Use
  Company Number: US-SA-2018SA291128

PATIENT

DRUGS (1)
  1. CLOLAR [Suspect]
     Active Substance: CLOFARABINE

REACTIONS (1)
  - Wrong technique in product usage process [Unknown]
